FAERS Safety Report 8859988 (Version 3)
Quarter: 2013Q1

REPORT INFORMATION
  Report Type: Spontaneous
  Country: SE (occurrence: SE)
  Receive Date: 20121025
  Receipt Date: 20130227
  Transmission Date: 20140127
  Serious: Yes (Other)
  Sender: FDA-Public Use
  Company Number: SE-PFIZER INC-2012263137

PATIENT
  Age: 48 Year
  Sex: Female

DRUGS (2)
  1. CHAMPIX [Suspect]
     Indication: SMOKING CESSATION THERAPY
     Dosage: UNK
     Route: 048
  2. CHAMPIX [Suspect]
     Dosage: UNK
     Route: 048
     Dates: start: 20120801, end: 20120804

REACTIONS (5)
  - Dermatitis bullous [Recovered/Resolved]
  - Nausea [Not Recovered/Not Resolved]
  - Abdominal pain [Recovered/Resolved]
  - Dysgeusia [Not Recovered/Not Resolved]
  - Dizziness [Recovered/Resolved]
